FAERS Safety Report 8678319 (Version 2)
Quarter: 2013Q1

REPORT INFORMATION
  Report Type: Spontaneous
  Country: DE (occurrence: DE)
  Receive Date: 20120723
  Receipt Date: 20130124
  Transmission Date: 20140127
  Serious: No
  Sender: FDA-Public Use
  Company Number: DE-B.I. PHARMACEUTICALS,INC./RIDGEFIELD-2012-DE-01679DE

PATIENT
  Age: 45 Year
  Sex: Female
  Weight: 86 kg

DRUGS (1)
  1. PRADAXA [Suspect]
     Indication: THROMBOSIS
     Dosage: 110 MG
     Dates: start: 20120410, end: 20120413

REACTIONS (3)
  - Drug intolerance [Recovered/Resolved]
  - Malaise [Recovered/Resolved]
  - Nausea [Recovered/Resolved]
